FAERS Safety Report 6735688-3 (Version None)
Quarter: 2010Q2

REPORT INFORMATION
  Report Type: 
  Country: None (occurrence: None)
  Receive Date: 20100521
  Receipt Date: 20100512
  Transmission Date: 20101027
  Serious: Yes (Life-Threatening, Other)
  Sender: FDA-Public Use
  Company Number: BR-JNJFOC-20100507701

PATIENT
  Age: 40 Year
  Sex: Male

DRUGS (3)
  1. REMICADE [Suspect]
     Indication: ANKYLOSING SPONDYLITIS
     Route: 042
  2. METHOTREXATE [Concomitant]
  3. ANTIINFLAMMATORY NOS [Concomitant]

REACTIONS (4)
  - ANAPHYLACTIC SHOCK [None]
  - BACK PAIN [None]
  - INFUSION RELATED REACTION [None]
  - MUSCLE SPASMS [None]
